FAERS Safety Report 18572194 (Version 2)
Quarter: 2021Q1

REPORT INFORMATION
  Report Type: Report from Study
  Country: DE (occurrence: DE)
  Receive Date: 20201202
  Receipt Date: 20210105
  Transmission Date: 20210419
  Serious: Yes (Hospitalization)
  Sender: FDA-Public Use
  Company Number: DE-REGENERON PHARMACEUTICALS, INC.-2020-91570

PATIENT

DRUGS (2)
  1. CEMIPLIMAB [Suspect]
     Active Substance: CEMIPLIMAB
     Indication: OROPHARYNGEAL CANCER
     Dosage: 350 MG, Q3W
     Route: 042
     Dates: start: 20200811, end: 20201103
  2. PLACEBO (ISA101B) [Suspect]
     Active Substance: INVESTIGATIONAL PRODUCT
     Indication: OROPHARYNGEAL CANCER
     Dosage: UNK
     Route: 058
     Dates: start: 20200804, end: 20200922

REACTIONS (1)
  - Hyperglycaemia [Recovered/Resolved with Sequelae]

NARRATIVE: CASE EVENT DATE: 20201124
